FAERS Safety Report 15327080 (Version 1)
Quarter: 2018Q3

REPORT INFORMATION
  Report Type: Spontaneous
  Country: JP (occurrence: JP)
  Receive Date: 20180828
  Receipt Date: 20180828
  Transmission Date: 20181010
  Serious: Yes (Death, Hospitalization, Other)
  Sender: FDA-Public Use
  Company Number: JP-PFIZER INC-2018340793

PATIENT
  Age: 73 Year
  Sex: Female

DRUGS (4)
  1. REVATIO [Suspect]
     Active Substance: SILDENAFIL CITRATE
     Indication: PULMONARY HYPERTENSION
     Dosage: 60 MG, DAILY
     Route: 048
  2. EDOXABAN [Concomitant]
     Active Substance: EDOXABAN TOSYLATE
     Dosage: UNK
  3. MACITENTAN [Concomitant]
     Active Substance: MACITENTAN
     Dosage: 5 MG, DAILY
  4. RIOCIGUAT. [Concomitant]
     Active Substance: RIOCIGUAT
     Dosage: 3 MG, DAILY
     Dates: start: 2016

REACTIONS (7)
  - Oedema peripheral [Unknown]
  - Death [Fatal]
  - Hypercapnia [Unknown]
  - Brain natriuretic peptide increased [Unknown]
  - Hypoxia [Unknown]
  - Right ventricular systolic pressure increased [Unknown]
  - Right ventricular dilatation [Unknown]

NARRATIVE: CASE EVENT DATE: 2017
